FAERS Safety Report 16598138 (Version 1)
Quarter: 2019Q3

REPORT INFORMATION
  Report Type: Spontaneous
  Country: US (occurrence: None)
  Receive Date: 20190719
  Receipt Date: 20190719
  Transmission Date: 20191004
  Serious: Yes (Hospitalization, Other)
  Sender: FDA-Public Use
  Company Number: HIKMA PHARMACEUTICALS USA INC.-US-H14001-19-04283

PATIENT
  Age: 34 Year
  Sex: Female

DRUGS (8)
  1. METHADONE [Suspect]
     Active Substance: METHADONE HYDROCHLORIDE
     Route: 065
  2. 17-HYDROXYPROGESTERONE [Concomitant]
     Indication: PROPHYLAXIS
     Route: 065
  3. METHADONE [Suspect]
     Active Substance: METHADONE HYDROCHLORIDE
     Indication: PRODUCT USED FOR UNKNOWN INDICATION
     Route: 065
  4. VITAMIN D [Concomitant]
     Active Substance: VITAMIN D NOS
     Indication: SUPPLEMENTATION THERAPY
     Route: 048
  5. BUPIVACAINE. [Concomitant]
     Active Substance: BUPIVACAINE
     Indication: ANAESTHESIA
     Route: 051
  6. CALCIUM [Concomitant]
     Active Substance: CALCIUM
     Indication: SUPPLEMENTATION THERAPY
     Route: 048
  7. 17-HYDROXYPROGESTERONE [Concomitant]
     Indication: PREMATURE LABOUR
  8. LMWH [Concomitant]
     Active Substance: UNSPECIFIED INGREDIENT
     Indication: THROMBOSIS PROPHYLAXIS
     Route: 058

REACTIONS (3)
  - Maternal exposure during pregnancy [Recovered/Resolved]
  - Drug dependence [Unknown]
  - Femoral neck fracture [Recovered/Resolved]
